FAERS Safety Report 5369444-8 (Version None)
Quarter: 2007Q2

REPORT INFORMATION
  Report Type: 
  Country: None (occurrence: None)
  Receive Date: 20070625
  Receipt Date: 20070620
  Transmission Date: 20071010
  Serious: Yes (Other)
  Sender: FDA-Public Use
  Company Number: CH-ELI_LILLY_AND_COMPANY-CH200705004325

PATIENT
  Age: 67 Year
  Sex: Female
  Weight: 64 kg

DRUGS (10)
  1. GEMZAR [Suspect]
     Indication: PANCREATIC CARCINOMA
     Dosage: 1000 MG/M2, UNK
     Route: 042
     Dates: start: 20070511, end: 20070515
  2. NAVOBAN [Concomitant]
     Indication: PROPHYLAXIS OF NAUSEA AND VOMITING
     Dosage: 2.5 MG, DAILY (1/D)
     Route: 042
     Dates: start: 20070511, end: 20070512
  3. ASPIRIN [Concomitant]
     Indication: CARDIAC DISORDER
     Dosage: 100 MG, DAILY (1/D)
     Route: 048
  4. BELOC ZOK [Concomitant]
     Indication: CARDIAC DISORDER
     Dosage: 12.5 MG, DAILY (1/D)
     Route: 048
  5. ATORVASTATIN CALCIUM [Concomitant]
     Dosage: 40 MG, DAILY (1/D)
     Route: 048
  6. CALCIUM ACETATE [Concomitant]
     Indication: RENAL FAILURE
     Dosage: 1500 MG, DAILY (1/D)
  7. VALVERDE [Concomitant]
     Indication: SEDATIVE THERAPY
     Dosage: 2 PILLS, DAILY (1/D)
     Route: 048
  8. PANTOZOL                                /GFR/ [Concomitant]
     Dosage: 20 MG, DAILY (1/D)
  9. ZOLPIDEM [Concomitant]
     Indication: SLEEP DISORDER
     Dosage: 10 MG, DAILY (1/D)
     Route: 048
  10. SOLU-MEDROL [Concomitant]
     Dosage: 125 MG, DAILY (1/D)
     Route: 042
     Dates: start: 20070511

REACTIONS (6)
  - ALANINE AMINOTRANSFERASE INCREASED [None]
  - ASPARTATE AMINOTRANSFERASE INCREASED [None]
  - BLOOD ALKALINE PHOSPHATASE INCREASED [None]
  - BLOOD BILIRUBIN INCREASED [None]
  - GAMMA-GLUTAMYLTRANSFERASE ABNORMAL [None]
  - SERUM FERRITIN INCREASED [None]
